FAERS Safety Report 4389214-7 (Version None)
Quarter: 2004Q2

REPORT INFORMATION
  Report Type: 
  Country: None (occurrence: None)
  Receive Date: 20040630
  Receipt Date: 20040616
  Transmission Date: 20050107
  Serious: Yes (Life-Threatening)
  Sender: FDA-Public Use
  Company Number: 2004039116

PATIENT
  Age: 67 Year
  Sex: Male
  Weight: 90 kg

DRUGS (6)
  1. FLUCONAZOLE [Suspect]
     Indication: CHOLECYSTITIS ACUTE
     Dosage: INTRAVENOUS
     Route: 042
     Dates: start: 20040329, end: 20040408
  2. FUSIDATE SODIUM (FUSIDATE SODIUM) [Suspect]
     Indication: CHOLECYSTITIS ACUTE
     Dosage: 1500 MG (500 MG, 3 ), INTRAVENOUS
     Route: 042
     Dates: start: 20040329, end: 20040404
  3. REMIFENTANIL HYDROCHLORIDE(REMIFENTANIL HYDROCHLORIDE) [Suspect]
     Indication: ILL-DEFINED DISORDER
     Dosage: INTRAVENOUS
     Route: 042
     Dates: start: 20040324, end: 20040404
  4. VANCOMYCIN HCL [Suspect]
     Indication: CHOLECYSTITIS ACUTE
     Dosage: 3 GRAM INTRAVENOUS
     Route: 042
     Dates: start: 20040329, end: 20040405
  5. OMEPRAZOLE [Suspect]
     Indication: ILL-DEFINED DISORDER
     Dosage: 40 MG INTRAVENOUS
     Route: 042
     Dates: start: 20040322, end: 20040406
  6. TIENAM (CILASTATIN, IMIPENEM) [Suspect]
     Indication: ILL-DEFINED DISORDER

REACTIONS (2)
  - OVERDOSE [None]
  - RENAL FAILURE ACUTE [None]
